FAERS Safety Report 8699668 (Version 2)
Quarter: 2013Q1

REPORT INFORMATION
  Report Type: Spontaneous
  Country: US (occurrence: None)
  Receive Date: 20120718
  Receipt Date: 20121210
  Transmission Date: 20140127
  Serious: Yes (Life-Threatening, Hospitalization, Other)
  Sender: FDA-Public Use
  Company Number: DEP_00670_2012

PATIENT
  Age: 50 Year
  Sex: Female

DRUGS (1)
  1. GABAPENTIN [Suspect]
     Indication: PRODUCT USED FOR UNKNOWN INDICATION
     Dosage: (OVERDOSE AMOUNT: UP TO 24,000 MG AND UP TO 7500 MG)

REACTIONS (9)
  - Depressed level of consciousness [None]
  - Movement disorder [None]
  - Overdose [None]
  - Neurotoxicity [None]
  - Posterior reversible encephalopathy syndrome [None]
  - Status epilepticus [None]
  - Respiratory depression [None]
  - Hypertension [None]
  - Pain [None]
